FAERS Safety Report 24875439 (Version 1)
Quarter: 2025Q1

REPORT INFORMATION
  Report Type: Spontaneous
  Country: US (occurrence: US)
  Receive Date: 20250122
  Receipt Date: 20250122
  Transmission Date: 20250408
  Serious: Yes (Other)
  Sender: PFIZER
  Company Number: US-PFIZER INC-PV202500007891

PATIENT
  Sex: Female
  Weight: 91.6 kg

DRUGS (5)
  1. IBRANCE [Suspect]
     Active Substance: PALBOCICLIB
     Indication: Breast cancer metastatic
     Dosage: UNK, 1X/DAY
     Route: 048
     Dates: start: 202101
  2. IBRANCE [Suspect]
     Active Substance: PALBOCICLIB
     Dosage: 100 MG, 1X/DAY
     Route: 048
     Dates: start: 20230808
  3. IBRANCE [Suspect]
     Active Substance: PALBOCICLIB
     Route: 048
     Dates: start: 20240312
  4. XGEVA [Suspect]
     Active Substance: DENOSUMAB
     Indication: Brain cancer metastatic
     Dosage: UNK, EVERY 3 MONTHS
  5. ANASTROZOLE [Suspect]
     Active Substance: ANASTROZOLE
     Indication: Brain cancer metastatic
     Dosage: 1 MG, 1X/DAY
     Route: 048
     Dates: start: 202101

REACTIONS (6)
  - Cholecystectomy [Unknown]
  - Oophorectomy bilateral [Unknown]
  - Wrist surgery [Unknown]
  - Seizure [Recovered/Resolved]
  - Anxiety [Unknown]
  - Fatigue [Unknown]

NARRATIVE: CASE EVENT DATE: 20210201
